FAERS Safety Report 6593796-4 (Version None)
Quarter: 2010Q1

REPORT INFORMATION
  Report Type: 
  Country: None (occurrence: None)
  Receive Date: 20100222
  Receipt Date: 20100210
  Transmission Date: 20100710
  Serious: Yes (Other)
  Sender: FDA-Public Use
  Company Number: US-PFIZER INC-2010020099

PATIENT
  Sex: Male

DRUGS (8)
  1. LIPITOR [Suspect]
     Indication: BLOOD CHOLESTEROL INCREASED
     Dosage: 40 MG, 2X/DAY
     Route: 048
     Dates: start: 20090101, end: 20100201
  2. PLAVIX [Concomitant]
     Dosage: UNK
  3. HYDROCHLOROTHIAZIDE [Concomitant]
     Dosage: 25 MG, UNK
  4. LISINOPRIL [Concomitant]
     Dosage: UNK
  5. METFORMIN [Concomitant]
     Indication: PROPHYLAXIS
     Dosage: UNK
  6. METOPROLOL [Concomitant]
     Dosage: UNK
  7. LOVAZA [Concomitant]
     Dosage: UNK
  8. COUMADIN [Concomitant]
     Dosage: UNK

REACTIONS (8)
  - ABNORMAL LOSS OF WEIGHT [None]
  - ARTHRALGIA [None]
  - FALL [None]
  - FEELING JITTERY [None]
  - MUSCLE SPASMS [None]
  - MUSCULAR WEAKNESS [None]
  - MYALGIA [None]
  - NECK PAIN [None]
